FAERS Safety Report 6184975-9 (Version None)
Quarter: 2009Q2

REPORT INFORMATION
  Report Type: 
  Country: None (occurrence: None)
  Receive Date: 20090511
  Receipt Date: 20090217
  Transmission Date: 20091009
  Serious: No
  Sender: FDA-Public Use
  Company Number: A0769115A

PATIENT
  Age: 79 Year
  Sex: Female

DRUGS (3)
  1. COREG CR [Suspect]
     Indication: HYPERTENSION
     Dosage: 10MG PER DAY
     Route: 048
     Dates: start: 20090213
  2. LIPITOR [Concomitant]
  3. ASPIRIN [Concomitant]

REACTIONS (2)
  - MUSCULAR WEAKNESS [None]
  - SENSATION OF HEAVINESS [None]
